FAERS Safety Report 24008093 (Version 1)
Quarter: 2024Q2

REPORT INFORMATION
  Report Type: Report from Study
  Country: BR (occurrence: BR)
  Receive Date: 20240625
  Receipt Date: 20240625
  Transmission Date: 20240716
  Serious: Yes (Hospitalization, Other)
  Sender: FDA-Public Use
  Company Number: BR-002147023-NVSC2024BR128810

PATIENT
  Sex: Male
  Weight: 57 kg

DRUGS (1)
  1. ENTRESTO [Suspect]
     Active Substance: SACUBITRIL\VALSARTAN
     Indication: Cardiac failure
     Dosage: 50 MG, BID
     Route: 048

REACTIONS (4)
  - Swelling [Recovered/Resolved]
  - Spinal fracture [Recovering/Resolving]
  - Pain [Unknown]
  - Wrong technique in product usage process [Not Recovered/Not Resolved]
